FAERS Safety Report 5198403-3 (Version None)
Quarter: 2006Q4

REPORT INFORMATION
  Report Type: 
  Country: None (occurrence: None)
  Receive Date: 20061229
  Receipt Date: 20061229
  Transmission Date: 20070319
  Serious: Yes (Life-Threatening, Hospitalization, Other)
  Sender: FDA-Public Use
  Company Number: None

PATIENT
  Age: 26 Year
  Sex: Female
  Weight: 56.6996 kg

DRUGS (1)
  1. TERBUTALINE SULFATE [Suspect]
     Indication: PREMATURE LABOUR
     Dates: start: 20040601, end: 20040801

REACTIONS (2)
  - ASTHMA [None]
  - DRUG EXPOSURE DURING PREGNANCY [None]
